FAERS Safety Report 5280336-5 (Version None)
Quarter: 2007Q1

REPORT INFORMATION
  Report Type: 
  Country: None (occurrence: None)
  Receive Date: 20061215
  Receipt Date: 20060925
  Transmission Date: 20070707
  Serious: Yes (Other)
  Sender: FDA-Public Use
  Company Number: HQWYE156326SEP06

PATIENT
  Age: 48 Year
  Sex: Male
  Weight: 75.36 kg

DRUGS (4)
  1. EFFEXOR XR [Suspect]
     Indication: ANXIETY
     Dosage: SEE IMAGE
     Route: 048
     Dates: start: 20060905, end: 20060925
  2. EFFEXOR XR [Suspect]
     Indication: DEPRESSION SUICIDAL
     Dosage: SEE IMAGE
     Route: 048
     Dates: start: 20060905, end: 20060925
  3. EFFEXOR XR [Suspect]
     Indication: ANXIETY
     Dosage: SEE IMAGE
     Route: 048
     Dates: start: 20060926
  4. EFFEXOR XR [Suspect]
     Indication: DEPRESSION SUICIDAL
     Dosage: SEE IMAGE
     Route: 048
     Dates: start: 20060926

REACTIONS (3)
  - ANXIETY [None]
  - CONDITION AGGRAVATED [None]
  - SUICIDAL IDEATION [None]
